FAERS Safety Report 8430466-1 (Version None)
Quarter: 2012Q2

REPORT INFORMATION
  Report Type: 
  Country: None (occurrence: None)
  Receive Date: 20120612
  Receipt Date: 20120606
  Transmission Date: 20120825
  Serious: Yes (Other)
  Sender: FDA-Public Use
  Company Number: US-PFIZER INC-2012136629

PATIENT
  Sex: Female
  Weight: 61 kg

DRUGS (3)
  1. METOPROLOL [Concomitant]
     Indication: HEART RATE IRREGULAR
     Dosage: UNK
  2. ATENOLOL [Concomitant]
     Indication: HEART RATE IRREGULAR
     Dosage: UNK
  3. AROMASIN [Suspect]
     Indication: BREAST CANCER
     Dosage: 25 MG, 1X/DAY
     Route: 048
     Dates: start: 20100201

REACTIONS (2)
  - HYPERTENSION [None]
  - ALOPECIA [None]
